FAERS Safety Report 5669914-9 (Version None)
Quarter: 2008Q1

REPORT INFORMATION
  Report Type: 
  Country: None (occurrence: None)
  Receive Date: 20080317
  Receipt Date: 20080305
  Transmission Date: 20080703
  Serious: Yes (Death)
  Sender: FDA-Public Use
  Company Number: FR-PFIZER INC-2008021476

PATIENT
  Sex: Female

DRUGS (1)
  1. ZYVOX [Suspect]

REACTIONS (1)
  - DEATH [None]
